FAERS Safety Report 6196662-1 (Version None)
Quarter: 2009Q2

REPORT INFORMATION
  Report Type: 
  Country: None (occurrence: None)
  Receive Date: 20090520
  Receipt Date: 20090512
  Transmission Date: 20091009
  Serious: Yes (Hospitalization)
  Sender: FDA-Public Use
  Company Number: B0567432A

PATIENT
  Age: 91 Year
  Sex: Female
  Weight: 60 kg

DRUGS (5)
  1. DEROXAT [Suspect]
     Indication: DEPRESSION
     Dosage: 20MG PER DAY
     Route: 048
     Dates: end: 20090401
  2. SECTRAL [Concomitant]
     Dosage: 100MG TWICE PER DAY
     Route: 048
  3. LASIX [Concomitant]
     Dosage: 20MG PER DAY
     Route: 048
  4. NOCTRAN [Concomitant]
     Dosage: 1TAB PER DAY
     Route: 048
  5. ALDACTONE [Concomitant]
     Route: 065

REACTIONS (2)
  - ACQUIRED HAEMOPHILIA [None]
  - SPONTANEOUS HAEMATOMA [None]
